FAERS Safety Report 15949950 (Version 1)
Quarter: 2019Q1

REPORT INFORMATION
  Report Type: Spontaneous
  Country: US (occurrence: US)
  Receive Date: 20190212
  Receipt Date: 20190212
  Transmission Date: 20190417
  Serious: No
  Sender: FDA-Public Use
  Company Number: US-BAYER-2019-026081

PATIENT
  Age: 32 Year
  Sex: Female
  Weight: 45.35 kg

DRUGS (2)
  1. CLARITIN-D NOS [Suspect]
     Active Substance: LORATADINE\PSEUDOEPHEDRINE SULFATE
     Indication: MULTIPLE ALLERGIES
     Dosage: 1 DF, QD
     Dates: start: 20100626, end: 20100627
  2. ASTEPRO [Suspect]
     Active Substance: AZELASTINE HYDROCHLORIDE
     Indication: MULTIPLE ALLERGIES
     Dosage: 822 ?G, QD (2 SPRAYS PER NOSTRIL)
     Route: 045
     Dates: start: 20100626, end: 20100627

REACTIONS (8)
  - Crying [Recovered/Resolved]
  - Confusional state [Not Recovered/Not Resolved]
  - Paranoia [Not Recovered/Not Resolved]
  - Abnormal behaviour [Unknown]
  - Agitation [Recovered/Resolved]
  - Social avoidant behaviour [Not Recovered/Not Resolved]
  - Eye disorder [Recovered/Resolved]
  - Disorientation [Not Recovered/Not Resolved]

NARRATIVE: CASE EVENT DATE: 20100626
